FAERS Safety Report 25345953 (Version 1)
Quarter: 2025Q2

REPORT INFORMATION
  Report Type: Spontaneous
  Country: CN (occurrence: CN)
  Receive Date: 20250522
  Receipt Date: 20250522
  Transmission Date: 20250717
  Serious: Yes (Hospitalization)
  Sender: BEIGENE
  Company Number: CN-BEIGENE-BGN-2025-007895

PATIENT
  Age: 71 Year
  Weight: 68 kg

DRUGS (8)
  1. TISLELIZUMAB [Suspect]
     Active Substance: TISLELIZUMAB
     Indication: Neoplasm malignant
  2. TISLELIZUMAB [Suspect]
     Active Substance: TISLELIZUMAB
     Route: 041
  3. TISLELIZUMAB [Suspect]
     Active Substance: TISLELIZUMAB
     Route: 041
  4. TISLELIZUMAB [Suspect]
     Active Substance: TISLELIZUMAB
  5. ETOPOSIDE [Concomitant]
     Active Substance: ETOPOSIDE
     Indication: Neoplasm malignant
     Route: 041
  6. ETOPOSIDE [Concomitant]
     Active Substance: ETOPOSIDE
  7. LOBAPLATIN [Concomitant]
     Active Substance: LOBAPLATIN
     Indication: Neoplasm malignant
     Route: 041
  8. LOBAPLATIN [Concomitant]
     Active Substance: LOBAPLATIN

REACTIONS (4)
  - Thrombocytopenic purpura [Not Recovered/Not Resolved]
  - Jaundice [Not Recovered/Not Resolved]
  - Hepatic enzyme increased [Not Recovered/Not Resolved]
  - Oedema peripheral [Not Recovered/Not Resolved]
